FAERS Safety Report 26111723 (Version 1)
Quarter: 2025Q4

REPORT INFORMATION
  Report Type: Spontaneous
  Country: US (occurrence: US)
  Receive Date: 20251202
  Receipt Date: 20251202
  Transmission Date: 20260117
  Serious: Yes (Death, Hospitalization, Other)
  Sender: GLENMARK
  Company Number: US-GLENMARK PHARMACEUTICALS-2025GMK106036

PATIENT
  Sex: Male

DRUGS (1)
  1. SIROLIMUS [Suspect]
     Active Substance: SIROLIMUS
     Indication: Product used for unknown indication
     Dosage: 1 DOSAGE FORM, AM
     Route: 065

REACTIONS (6)
  - Pneumonia [Fatal]
  - Urinary tract infection [Fatal]
  - Hip fracture [Unknown]
  - Fall [Unknown]
  - Drug level increased [Unknown]
  - Wrong technique in product usage process [Unknown]
